FAERS Safety Report 10620011 (Version 1)
Quarter: 2014Q4

REPORT INFORMATION
  Report Type: Spontaneous
  Country: US (occurrence: None)
  Receive Date: 20141201
  Receipt Date: 20141201
  Transmission Date: 20150529
  Serious: Yes (Disabling)
  Sender: FDA-Public Use
  Company Number: None

PATIENT
  Age: 62 Year
  Sex: Male
  Weight: 68.04 kg

DRUGS (1)
  1. TRAMADOL HCL [Suspect]
     Active Substance: TRAMADOL HYDROCHLORIDE
     Indication: PAIN MANAGEMENT
     Dosage: 1-2 (50-100MG) AS NEEDED TAKEN BY MOUTH
     Route: 048
     Dates: start: 20140101, end: 20141128

REACTIONS (7)
  - Dehydration [None]
  - Product substitution issue [None]
  - Drug withdrawal syndrome [None]
  - Product quality issue [None]
  - Nausea [None]
  - Vomiting [None]
  - Drug effect decreased [None]

NARRATIVE: CASE EVENT DATE: 20141129
